FAERS Safety Report 18842395 (Version 5)
Quarter: 2021Q1

REPORT INFORMATION
  Report Type: Report from Study
  Country: US (occurrence: US)
  Receive Date: 20210203
  Receipt Date: 20210326
  Transmission Date: 20210419
  Serious: Yes (Hospitalization, Other)
  Sender: FDA-Public Use
  Company Number: US-JNJFOC-20210118682

PATIENT
  Age: 47 Year
  Sex: Female
  Weight: 65.83 kg

DRUGS (7)
  1. TYVASO [Concomitant]
     Active Substance: TREPROSTINIL
  2. VELETRI [Suspect]
     Active Substance: EPOPROSTENOL
     Indication: PULMONARY ARTERIAL HYPERTENSION
     Route: 042
  3. MACITENTAN [Suspect]
     Active Substance: MACITENTAN
     Indication: PULMONARY ARTERIAL HYPERTENSION
     Route: 048
  4. VELETRI [Suspect]
     Active Substance: EPOPROSTENOL
     Route: 042
  5. ADEMPAS [Suspect]
     Active Substance: RIOCIGUAT
     Indication: PRODUCT USED FOR UNKNOWN INDICATION
     Route: 065
  6. SILDENAFIL. [Concomitant]
     Active Substance: SILDENAFIL
  7. TADALAFIL. [Concomitant]
     Active Substance: TADALAFIL

REACTIONS (11)
  - Salivary gland pain [Unknown]
  - Pain in jaw [Unknown]
  - Headache [Recovering/Resolving]
  - Dyspnoea exertional [Unknown]
  - Hospitalisation [Unknown]
  - Nausea [Unknown]
  - Diarrhoea [Unknown]
  - Concussion [Unknown]
  - Head injury [Unknown]
  - Loss of consciousness [Unknown]
  - Pain in extremity [Unknown]

NARRATIVE: CASE EVENT DATE: 2021
